FAERS Safety Report 7536651-5 (Version None)
Quarter: 2011Q2

REPORT INFORMATION
  Report Type: 
  Country: None (occurrence: None)
  Receive Date: 20110609
  Receipt Date: 20110524
  Transmission Date: 20111010
  Serious: Yes (Hospitalization)
  Sender: FDA-Public Use
  Company Number: A0789818A

PATIENT
  Age: 67 Year
  Sex: Male

DRUGS (5)
  1. LOTREL [Concomitant]
  2. SIMVASTATIN [Concomitant]
  3. TOPROL-XL [Concomitant]
  4. AVANDIA [Suspect]
     Dosage: 8MG TWICE PER DAY
     Route: 048
     Dates: start: 20010801, end: 20070501
  5. GLIPIZIDE [Concomitant]

REACTIONS (7)
  - CARDIAC FAILURE CONGESTIVE [None]
  - VENTRICULAR ARRHYTHMIA [None]
  - MYOCARDIAL INFARCTION [None]
  - ARRHYTHMIA [None]
  - CORONARY ARTERY DISEASE [None]
  - MITRAL VALVE INCOMPETENCE [None]
  - ATRIAL SEPTAL DEFECT [None]
